FAERS Safety Report 9784702 (Version 2)
Quarter: 2014Q1

REPORT INFORMATION
  Report Type: Report from Study
  Country: JP (occurrence: JP)
  Receive Date: 20131226
  Receipt Date: 20140328
  Transmission Date: 20141002
  Serious: Yes (Hospitalization)
  Sender: FDA-Public Use
  Company Number: JP-AMGEN-JPNCT2013090684

PATIENT
  Age: 79 Year
  Sex: Male
  Weight: 68 kg

DRUGS (29)
  1. DARBEPOETIN ALFA [Suspect]
     Indication: NEPHROGENIC ANAEMIA
     Dosage: 30 MUG, UNK
     Route: 058
     Dates: start: 20111216
  2. GASTER D [Concomitant]
     Dosage: 1 DF, QD
     Route: 048
     Dates: start: 20130218, end: 20130418
  3. ALLOZYM [Concomitant]
     Dosage: 1 DF, QD
     Route: 048
     Dates: start: 20130218, end: 20130407
  4. BIO-THREE [Concomitant]
     Dosage: UNK
     Route: 048
  5. ALESION [Concomitant]
     Dosage: UNK
     Route: 048
  6. DAIKENCHUTO [Concomitant]
     Dosage: UNK
     Route: 048
  7. BERIZYM                            /07475701/ [Concomitant]
     Dosage: UNK
     Route: 048
  8. RHYTHMY [Concomitant]
     Dosage: UNK
     Route: 048
  9. MYONAL                             /00287502/ [Concomitant]
     Dosage: UNK
     Route: 048
  10. PURSENNID                          /00142207/ [Concomitant]
     Dosage: UNK
     Route: 048
  11. RESTAMIN                           /00000401/ [Concomitant]
     Dosage: UNK
     Route: 061
  12. MAGNESIUM OXIDE [Concomitant]
     Dosage: UNK
     Route: 048
  13. BAKTAR [Concomitant]
     Dosage: UNK
     Route: 048
  14. CLINORIL [Concomitant]
     Dosage: UNK
     Route: 048
  15. RINDERON-VG [Concomitant]
     Dosage: UNK
     Route: 061
  16. SIGMART [Concomitant]
     Dosage: UNK
     Route: 048
  17. TEPRENONE [Concomitant]
     Dosage: UNK
     Route: 048
  18. HALFDIGOXIN [Concomitant]
     Dosage: UNK
     Route: 048
  19. LIPITOR [Concomitant]
     Dosage: UNK
     Route: 048
  20. BUFFERIN                           /00002701/ [Concomitant]
     Dosage: 330 MG, UNK
     Route: 048
  21. LUPRAC [Concomitant]
     Dosage: UNK
     Route: 048
  22. NEXIUM                             /01479302/ [Concomitant]
     Dosage: UNK
     Route: 048
  23. MIYA BM [Concomitant]
     Dosage: UNK
     Route: 048
  24. NEOMALLERMIN [Concomitant]
     Dosage: UNK
     Route: 048
  25. ROZEREM [Concomitant]
     Dosage: UNK
     Route: 048
  26. FEBURIC [Concomitant]
     Dosage: UNK
     Route: 048
  27. DIART [Concomitant]
     Dosage: UNK
     Route: 048
  28. ADOAIR [Concomitant]
     Dosage: UNK
     Route: 055
  29. FUROSEMIDE [Concomitant]
     Dosage: 1 DF, QD
     Route: 048
     Dates: start: 20130218, end: 20130415

REACTIONS (3)
  - Eosinophil count increased [Recovering/Resolving]
  - Pneumonia [Recovered/Resolved]
  - Pneumonia [Recovered/Resolved]
